FAERS Safety Report 10591209 (Version 1)
Quarter: 2014Q4

REPORT INFORMATION
  Report Type: Spontaneous
  Country: IN (occurrence: IN)
  Receive Date: 20141118
  Receipt Date: 20141118
  Transmission Date: 20150529
  Serious: Yes (Death)
  Sender: FDA-Public Use
  Company Number: PHHY2014IN147217

PATIENT
  Age: 54 Year
  Sex: Male

DRUGS (1)
  1. METFORMIN [Suspect]
     Active Substance: METFORMIN HYDROCHLORIDE
     Indication: TYPE 2 DIABETES MELLITUS
     Route: 065

REACTIONS (10)
  - Haemolysis [Fatal]
  - Fatigue [Fatal]
  - Autoimmune haemolytic anaemia [Fatal]
  - Reticulocyte count increased [Fatal]
  - Ocular icterus [Fatal]
  - Blood lactate dehydrogenase increased [Fatal]
  - Jaundice [Fatal]
  - Pallor [Fatal]
  - Blood bilirubin increased [Fatal]
  - Haptoglobin decreased [Fatal]
